FAERS Safety Report 25745210 (Version 1)
Quarter: 2025Q3

REPORT INFORMATION
  Report Type: Spontaneous
  Country: US (occurrence: US)
  Receive Date: 20250901
  Receipt Date: 20250901
  Transmission Date: 20251021
  Serious: Yes (Other)
  Sender: AUROBINDO
  Company Number: US-AUROBINDO-AUR-APL-2025-043451

PATIENT
  Age: 30 Year

DRUGS (11)
  1. ALPRAZOLAM [Suspect]
     Active Substance: ALPRAZOLAM
     Indication: Anxiety
     Route: 065
  2. HYDROMORPHONE [Suspect]
     Active Substance: HYDROMORPHONE
     Indication: Pain
     Route: 048
  3. HYDROMORPHONE [Suspect]
     Active Substance: HYDROMORPHONE
     Route: 042
  4. OLANZAPINE [Suspect]
     Active Substance: OLANZAPINE
     Indication: Anxiety
     Route: 065
  5. OLANZAPINE [Suspect]
     Active Substance: OLANZAPINE
     Indication: Insomnia
  6. OLANZAPINE [Suspect]
     Active Substance: OLANZAPINE
     Indication: Nausea
  7. KETAMINE HYDROCHLORIDE [Suspect]
     Active Substance: KETAMINE HYDROCHLORIDE
     Indication: Depressive symptom
     Route: 042
  8. HALOPERIDOL [Suspect]
     Active Substance: HALOPERIDOL
     Indication: Anxiety
     Route: 042
  9. VALPROATE [Suspect]
     Active Substance: VALPROIC ACID
     Indication: Depressive symptom
     Route: 042
  10. BUPRENORPHINE\NALOXONE [Suspect]
     Active Substance: BUPRENORPHINE\NALOXONE
     Indication: Pain
     Dosage: UNK, TWO TIMES A DAY
     Route: 065
  11. SELEGILINE [Suspect]
     Active Substance: SELEGILINE
     Indication: Depressive symptom
     Route: 065

REACTIONS (4)
  - Ileus [Unknown]
  - Intentional product misuse [Unknown]
  - Sedation complication [Unknown]
  - Drug ineffective [Unknown]
